FAERS Safety Report 10947786 (Version 1)
Quarter: 2015Q1

REPORT INFORMATION
  Report Type: Spontaneous
  Country: US (occurrence: US)
  Receive Date: 20150324
  Receipt Date: 20150324
  Transmission Date: 20150721
  Serious: Yes (Hospitalization)
  Sender: FDA-Public Use
  Company Number: US-AMGEN-USASP2015026434

PATIENT
  Age: 61 Year
  Sex: Female

DRUGS (1)
  1. ENBREL [Suspect]
     Active Substance: ETANERCEPT
     Indication: PUSTULAR PSORIASIS
     Dosage: 50 MG, QWK
     Route: 065
     Dates: start: 20041001, end: 201503

REACTIONS (5)
  - Pain in extremity [Not Recovered/Not Resolved]
  - Peripheral arterial occlusive disease [Recovered/Resolved]
  - Urinary tract infection [Recovered/Resolved]
  - Nasopharyngitis [Recovered/Resolved]
  - Blister [Not Recovered/Not Resolved]

NARRATIVE: CASE EVENT DATE: 201402
